FAERS Safety Report 4620925-1 (Version None)
Quarter: 2005Q1

REPORT INFORMATION
  Report Type: 
  Country: None (occurrence: None)
  Receive Date: 20050325
  Receipt Date: 20050309
  Transmission Date: 20050727
  Serious: No
  Sender: FDA-Public Use
  Company Number: A01200501472

PATIENT
  Age: 55 Year
  Sex: Male

DRUGS (7)
  1. PLAVIX [Suspect]
     Indication: CORONARY ANGIOPLASTY
     Dosage: 75 MG OD ORAL
     Route: 048
     Dates: start: 20031015, end: 20040102
  2. PLAVIX [Suspect]
     Indication: CORONARY ARTERIAL STENT INSERTION
     Dosage: 75 MG OD ORAL
     Route: 048
     Dates: start: 20031015, end: 20040102
  3. PLAVIX [Suspect]
     Indication: MYOCARDIAL INFARCTION
     Dosage: 75 MG OD ORAL
     Route: 048
     Dates: start: 20031015, end: 20040102
  4. RAMIPRIL [Concomitant]
  5. BELOC (METOPROLOL TARTRATE) [Concomitant]
  6. MEVALOTINE (PRAVASTATIN SODIUM) [Concomitant]
  7. KARDEGIC (ACETYLSALICYLATE LYSINE) [Concomitant]

REACTIONS (4)
  - GINGIVITIS [None]
  - PAIN [None]
  - PERIODONTITIS [None]
  - TOOTHACHE [None]
